FAERS Safety Report 10768676 (Version 1)
Quarter: 2015Q1

REPORT INFORMATION
  Report Type: Spontaneous
  Country: US (occurrence: None)
  Receive Date: 20150205
  Receipt Date: 20150205
  Transmission Date: 20150721
  Serious: Yes (Hospitalization)
  Sender: FDA-Public Use
  Company Number: None

PATIENT
  Age: 78 Year
  Sex: Female
  Weight: 75.6 kg

DRUGS (14)
  1. PRILOSEC [Concomitant]
     Active Substance: OMEPRAZOLE MAGNESIUM
  2. DEMADEX [Concomitant]
     Active Substance: TORSEMIDE
  3. TRAMADOL [Concomitant]
     Active Substance: TRAMADOL
  4. KEFLEX [Concomitant]
     Active Substance: CEPHALEXIN
  5. ZESTRIL [Concomitant]
     Active Substance: LISINOPRIL
  6. MACROBID [Concomitant]
     Active Substance: NITROFURANTOIN\NITROFURANTOIN MONOHYDRATE
  7. SEROQUEL [Concomitant]
     Active Substance: QUETIAPINE FUMARATE
  8. NORCO [Concomitant]
     Active Substance: ACETAMINOPHEN\HYDROCODONE BITARTRATE
  9. COUMADIN [Suspect]
     Active Substance: WARFARIN SODIUM
     Indication: ATRIAL FIBRILLATION
     Dosage: DATE OF USE: CHRONIC, 3MG, DAILY, PO
     Route: 048
  10. ARICEPT [Concomitant]
     Active Substance: DONEPEZIL HYDROCHLORIDE
  11. CRESTOR [Concomitant]
     Active Substance: ROSUVASTATIN CALCIUM
  12. COREG [Concomitant]
     Active Substance: CARVEDILOL
  13. ZYRTEC [Concomitant]
     Active Substance: CETIRIZINE HYDROCHLORIDE
  14. ZOFRAN [Concomitant]
     Active Substance: ONDANSETRON HYDROCHLORIDE

REACTIONS (5)
  - Coagulopathy [None]
  - Acute kidney injury [None]
  - Urinary tract infection [None]
  - International normalised ratio increased [None]
  - Hypophagia [None]

NARRATIVE: CASE EVENT DATE: 20141112
